FAERS Safety Report 5450111-7 (Version None)
Quarter: 2007Q3

REPORT INFORMATION
  Report Type: 
  Country: None (occurrence: None)
  Receive Date: 20070912
  Receipt Date: 20070904
  Transmission Date: 20080115
  Serious: Yes (Congenital Anomaly)
  Sender: FDA-Public Use
  Company Number: US-BRISTOL-MYERS SQUIBB COMPANY-13884226

PATIENT
  Sex: Female
  Weight: 3 kg

DRUGS (6)
  1. SUSTIVA [Suspect]
     Route: 064
  2. STAVUDINE [Suspect]
     Route: 064
  3. ZIDOVUDINE [Suspect]
     Route: 064
  4. NELFINAVIR MESYLATE [Suspect]
     Route: 064
  5. LAMIVUDINE [Suspect]
     Route: 064
  6. ABACAVIR SULFATE [Suspect]
     Route: 064

REACTIONS (3)
  - DRUG EXPOSURE DURING PREGNANCY [None]
  - PREGNANCY [None]
  - SKIN DISORDER [None]
